FAERS Safety Report 6223855-7 (Version None)
Quarter: 2009Q2

REPORT INFORMATION
  Report Type: 
  Country: None (occurrence: None)
  Receive Date: 20090611
  Receipt Date: 20090302
  Transmission Date: 20091009
  Serious: No
  Sender: FDA-Public Use
  Company Number: US-ABBOTT-09P-163-0560225-00

PATIENT
  Sex: Female

DRUGS (1)
  1. HUMIRA [Suspect]
     Indication: RHEUMATOID ARTHRITIS
     Dates: start: 20080722

REACTIONS (5)
  - ARTHRALGIA [None]
  - DRUG INEFFECTIVE [None]
  - FATIGUE [None]
  - JOINT SWELLING [None]
  - PYREXIA [None]
